FAERS Safety Report 6171438-X (Version None)
Quarter: 2009Q2

REPORT INFORMATION
  Report Type: 
  Country: None (occurrence: None)
  Receive Date: 20090429
  Receipt Date: 20090311
  Transmission Date: 20091009
  Serious: No
  Sender: FDA-Public Use
  Company Number: US-BAYER-200915262NA

PATIENT
  Age: 23 Year
  Sex: Female

DRUGS (3)
  1. YASMIN [Suspect]
     Indication: ACNE
     Route: 048
     Dates: start: 20081201
  2. SOLIDINE NOS [Concomitant]
     Indication: ACNE
  3. EPIDUO [Concomitant]
     Indication: ACNE

REACTIONS (1)
  - ACNE CYSTIC [None]
